FAERS Safety Report 24558145 (Version 1)
Quarter: 2024Q4

REPORT INFORMATION
  Report Type: Report from Study
  Country: US (occurrence: US)
  Receive Date: 20241028
  Receipt Date: 20241028
  Transmission Date: 20250114
  Serious: Yes (Other)
  Sender: ABBVIE
  Company Number: US-ABBVIE-5673280

PATIENT
  Age: 61 Year
  Sex: Male

DRUGS (3)
  1. RINVOQ [Suspect]
     Active Substance: UPADACITINIB
     Indication: Dermatitis atopic
     Dosage: FORM STRENGTH: 15 MG
     Route: 048
     Dates: start: 202401, end: 202401
  2. RINVOQ [Suspect]
     Active Substance: UPADACITINIB
     Indication: Dermatitis atopic
     Dosage: FORM STRENGTH: 15 MG
     Route: 048
     Dates: start: 202401
  3. RINVOQ [Suspect]
     Active Substance: UPADACITINIB
     Indication: Dermatitis atopic
     Dosage: FORM STRENGTH: 15 MG, FIRST AND LAST ADMIN DATE-2024
     Route: 048

REACTIONS (11)
  - Staphylococcal infection [Recovered/Resolved]
  - Rash [Recovered/Resolved]
  - Therapeutic response shortened [Not Recovered/Not Resolved]
  - Blister [Unknown]
  - Pain [Unknown]
  - Skin burning sensation [Unknown]
  - Skin fissures [Unknown]
  - Urticaria [Unknown]
  - Skin exfoliation [Unknown]
  - Dermatitis atopic [Unknown]
  - Sleep disorder [Unknown]

NARRATIVE: CASE EVENT DATE: 20240101
